FAERS Safety Report 15560766 (Version 1)
Quarter: 2018Q4

REPORT INFORMATION
  Report Type: Spontaneous
  Country: US (occurrence: US)
  Receive Date: 20181029
  Receipt Date: 20181029
  Transmission Date: 20190205
  Serious: Yes (Life-Threatening, Hospitalization, Other)
  Sender: FDA-Public Use
  Company Number: None

PATIENT
  Age: 67 Year
  Sex: Female
  Weight: 65.25 kg

DRUGS (12)
  1. PREDNISONE. [Concomitant]
     Active Substance: PREDNISONE
  2. METHOTREXATE. [Concomitant]
     Active Substance: METHOTREXATE
  3. TYLENOL [Concomitant]
     Active Substance: ACETAMINOPHEN
  4. XELJANZ XR [Concomitant]
     Active Substance: TOFACITINIB CITRATE
  5. FOLIC ACID. [Concomitant]
     Active Substance: FOLIC ACID
  6. VITAMIN D3 [Concomitant]
     Active Substance: CHOLECALCIFEROL
  7. TURMERIC [Concomitant]
     Active Substance: HERBALS\TURMERIC
  8. VOLTAREN [Concomitant]
     Active Substance: DICLOFENAC SODIUM
  9. VITAMIN B12 [Concomitant]
     Active Substance: CYANOCOBALAMIN
  10. RISEDRONATE SODIUM 150 MG [Suspect]
     Active Substance: RISEDRONATE SODIUM
     Indication: BONE LOSS
     Dosage: ?          QUANTITY:1 TABLET(S);OTHER FREQUENCY:MONTHLY;?
     Route: 048
     Dates: start: 20181003
  11. ASPIRIN. [Concomitant]
     Active Substance: ASPIRIN
  12. VITAMIN B12 [Concomitant]
     Active Substance: CYANOCOBALAMIN

REACTIONS (6)
  - Asthenia [None]
  - Product origin unknown [None]
  - Flushing [None]
  - Palpitations [None]
  - Headache [None]
  - Dyspnoea [None]

NARRATIVE: CASE EVENT DATE: 20181003
